FAERS Safety Report 6117157-7 (Version None)
Quarter: 2009Q1

REPORT INFORMATION
  Report Type: 
  Country: None (occurrence: None)
  Receive Date: 20090314
  Receipt Date: 20090109
  Transmission Date: 20090719
  Serious: No
  Sender: FDA-Public Use
  Company Number: US-ABBOTT-09P-163-0496710-00

PATIENT
  Sex: Female
  Weight: 124.85 kg

DRUGS (6)
  1. HUMIRA [Suspect]
     Indication: COLITIS ULCERATIVE
     Route: 058
     Dates: start: 20081001
  2. ADVAIR HFA [Concomitant]
     Indication: ASTHMA
  3. ACIPHEX [Concomitant]
     Indication: OESOPHAGITIS
  4. CYMBALTA [Concomitant]
     Indication: DEPRESSION
  5. CYMBALTA [Concomitant]
     Indication: GENERALISED ANXIETY DISORDER
  6. XANAX [Concomitant]
     Indication: DEPRESSION

REACTIONS (2)
  - INCORRECT DOSE ADMINISTERED [None]
  - INJECTION SITE PAIN [None]
